FAERS Safety Report 16724678 (Version 4)
Quarter: 2020Q1

REPORT INFORMATION
  Report Type: Report from Study
  Country: CO (occurrence: CO)
  Receive Date: 20190821
  Receipt Date: 20200325
  Transmission Date: 20200409
  Serious: Yes (Life-Threatening)
  Sender: FDA-Public Use
  Company Number: CO-BRISTOL-MYERS SQUIBB COMPANY-BMS-2019-049807

PATIENT
  Age: 56 Year
  Sex: Female

DRUGS (2)
  1. ABATACEPT [Suspect]
     Active Substance: ABATACEPT
     Indication: PRODUCT USED FOR UNKNOWN INDICATION
     Dosage: 125 MILLIGRAM, QWK
     Route: 058
     Dates: start: 20160313
  2. ABATACEPT [Suspect]
     Active Substance: ABATACEPT
     Indication: RHEUMATOID ARTHRITIS
     Dosage: 500 MILLIGRAM, Q4WK
     Route: 042
     Dates: start: 20160313

REACTIONS (9)
  - Arthralgia [Unknown]
  - Hypersensitivity [Recovering/Resolving]
  - Platelet count decreased [Recovering/Resolving]
  - Pyrexia [Recovering/Resolving]
  - Urinary tract infection [Recovering/Resolving]
  - Fall [Recovering/Resolving]
  - Joint injury [Recovering/Resolving]
  - Nasopharyngitis [Recovering/Resolving]
  - Skin disorder [Recovering/Resolving]

NARRATIVE: CASE EVENT DATE: 20190509
